FAERS Safety Report 4704973-9 (Version None)
Quarter: 2005Q2

REPORT INFORMATION
  Report Type: 
  Country: None (occurrence: None)
  Receive Date: 20050624
  Receipt Date: 20050624
  Transmission Date: 20051028
  Serious: No
  Sender: FDA-Public Use
  Company Number: None

PATIENT
  Age: 58 Year
  Sex: Female
  Weight: 88 kg

DRUGS (6)
  1. CYMBALTA [Suspect]
     Indication: DEPRESSION
     Dosage: 40 MG ONCE DAILY ORAL
     Route: 048
     Dates: start: 20050301, end: 20050404
  2. CYMBALTA [Suspect]
     Indication: DEPRESSION
     Dosage: 20 MG ONCE DAILY ORAL
     Route: 048
     Dates: start: 20050404, end: 20050520
  3. LOSARTAN [Concomitant]
  4. METFORMIN [Concomitant]
  5. PERPHENAZINE [Concomitant]
  6. ZIPRASIDONE [Concomitant]

REACTIONS (2)
  - DIFFICULTY IN WALKING [None]
  - ORTHOSTATIC HYPOTENSION [None]
